FAERS Safety Report 5102251-X (Version None)
Quarter: 2006Q3

REPORT INFORMATION
  Report Type: 
  Country: None (occurrence: None)
  Receive Date: 20060912
  Receipt Date: 20060901
  Transmission Date: 20061208
  Serious: Yes (Other)
  Sender: FDA-Public Use
  Company Number: US-JNJFOC-20060900909

PATIENT
  Age: 81 Year
  Sex: Female

DRUGS (1)
  1. TRAMADOL HCL [Suspect]
     Indication: BACK PAIN
     Route: 048

REACTIONS (3)
  - CONVULSION [None]
  - HALLUCINATION [None]
  - SUPRAVENTRICULAR TACHYCARDIA [None]
